FAERS Safety Report 7994470-X (Version None)
Quarter: 2011Q4

REPORT INFORMATION
  Report Type: 
  Country: None (occurrence: None)
  Receive Date: 20111220
  Receipt Date: 20111025
  Transmission Date: 20120403
  Serious: Yes (Other)
  Sender: FDA-Public Use
  Company Number: US-NAPPMUNDI-USA-2011-0079876

PATIENT
  Sex: Female

DRUGS (1)
  1. OXYCONTIN [Suspect]
     Indication: INTERVERTEBRAL DISC PROTRUSION
     Dosage: UNK
     Dates: start: 20050401

REACTIONS (6)
  - DRUG DEPENDENCE [None]
  - DEPRESSION [None]
  - MATERNAL EXPOSURE DURING PREGNANCY [None]
  - SUICIDAL IDEATION [None]
  - UNEVALUABLE EVENT [None]
  - DEATH OF RELATIVE [None]
